FAERS Safety Report 7337801-6 (Version None)
Quarter: 2011Q1

REPORT INFORMATION
  Report Type: 
  Country: None (occurrence: None)
  Receive Date: 20110308
  Receipt Date: 20110302
  Transmission Date: 20110831
  Serious: Yes (Death, Hospitalization)
  Sender: FDA-Public Use
  Company Number: JP-ROCHE-718677

PATIENT
  Sex: Male
  Weight: 50 kg

DRUGS (16)
  1. TOCILIZUMAB [Suspect]
     Route: 041
     Dates: start: 20100113, end: 20100113
  2. PYRIDOXAL PHOSPHATE [Concomitant]
     Dosage: NOTE: 10 MG/ MONTH AND TREE
     Route: 048
     Dates: start: 20091008
  3. PERSANTIN [Concomitant]
     Dosage: DRUG NAME: PERSANTIN-L
     Route: 048
     Dates: end: 20091021
  4. ESPO [Concomitant]
     Route: 058
     Dates: start: 20091207, end: 20100104
  5. NEOISCOTIN [Concomitant]
     Route: 048
     Dates: start: 20091008
  6. TOCILIZUMAB [Suspect]
     Route: 041
     Dates: start: 20091109, end: 20091109
  7. PREDNISOLONE [Concomitant]
     Route: 048
  8. TOCILIZUMAB [Suspect]
     Route: 041
     Dates: start: 20091207, end: 20091207
  9. TOCILIZUMAB [Suspect]
     Route: 041
  10. PREDNISOLONE [Concomitant]
     Route: 048
  11. LUPRAC [Concomitant]
     Route: 048
     Dates: end: 20091021
  12. ESPO [Concomitant]
     Route: 058
     Dates: end: 20091109
  13. TOCILIZUMAB [Suspect]
     Indication: RHEUMATOID ARTHRITIS
     Route: 041
     Dates: start: 20091008, end: 20091008
  14. PREDONINE [Concomitant]
     Route: 042
     Dates: start: 20100105
  15. TAKEPRON [Concomitant]
     Route: 048
     Dates: start: 20091008
  16. BAKTAR [Concomitant]
     Dosage: NOTE: ONE/ FIRE AND MONEY
     Route: 048
     Dates: start: 20091008

REACTIONS (8)
  - HISTIOCYTOSIS HAEMATOPHAGIC [None]
  - RENAL FAILURE [None]
  - AMYLOIDOSIS [None]
  - HYPERURICAEMIA [None]
  - PLATELET COUNT DECREASED [None]
  - CYTOMEGALOVIRUS INFECTION [None]
  - ARTERIOVENOUS SHUNT OPERATION [None]
  - ENTERITIS INFECTIOUS [None]
